FAERS Safety Report 12922486 (Version 1)
Quarter: 2016Q4

REPORT INFORMATION
  Report Type: Spontaneous
  Country: US (occurrence: US)
  Receive Date: 20161109
  Receipt Date: 20161109
  Transmission Date: 20170207
  Serious: Yes (Other)
  Sender: FDA-Public Use
  Company Number: US-AMGEN-USASP2016154383

PATIENT
  Age: 71 Year
  Sex: Female
  Weight: 97.51 kg

DRUGS (12)
  1. CRESTOR [Concomitant]
     Active Substance: ROSUVASTATIN CALCIUM
  2. VITAMIN D [Concomitant]
     Active Substance: CHOLECALCIFEROL
  3. CALTRATE [Concomitant]
     Active Substance: CALCIUM CARBONATE
  4. PROLIA [Suspect]
     Active Substance: DENOSUMAB
     Indication: OSTEOPOROSIS POSTMENOPAUSAL
     Dosage: UNK
     Route: 065
  5. LORAZEPAM. [Concomitant]
     Active Substance: LORAZEPAM
  6. GABAPENTIN. [Concomitant]
     Active Substance: GABAPENTIN
  7. MAG OXIDE [Concomitant]
     Active Substance: MAGNESIUM OXIDE
  8. VITAMIN C [Concomitant]
     Active Substance: ASCORBIC ACID
  9. COREG [Concomitant]
     Active Substance: CARVEDILOL
  10. LEVOTHYROXINE. [Concomitant]
     Active Substance: LEVOTHYROXINE
  11. WELLBUTRIN [Concomitant]
     Active Substance: BUPROPION HYDROCHLORIDE
  12. PROZAC [Concomitant]
     Active Substance: FLUOXETINE HYDROCHLORIDE

REACTIONS (3)
  - Fall [Unknown]
  - Clavicle fracture [Unknown]
  - Dental caries [Unknown]

NARRATIVE: CASE EVENT DATE: 20161005
